FAERS Safety Report 15492606 (Version 1)
Quarter: 2018Q4

REPORT INFORMATION
  Report Type: Spontaneous
  Country: DE (occurrence: DE)
  Receive Date: 20181012
  Receipt Date: 20181012
  Transmission Date: 20190205
  Serious: Yes (Life-Threatening, Other)
  Sender: FDA-Public Use
  Company Number: DE-AUROBINDO-AUR-APL-2017-40087

PATIENT
  Age: 55 Year
  Sex: Female
  Weight: 76 kg

DRUGS (34)
  1. DULOXETINE. [Suspect]
     Active Substance: DULOXETINE
     Indication: DEPRESSIVE SYMPTOM
     Dosage: REDUCTION OF DULOXETINE DOSE
     Route: 065
  2. BISOPROLOL [Concomitant]
     Active Substance: BISOPROLOL
     Dosage: 10 MG, QD
     Route: 065
  3. ATORVASTATIN [Concomitant]
     Active Substance: ATORVASTATIN
     Dosage: 20 MG, QD
     Route: 065
  4. DULOXETINE. [Interacting]
     Active Substance: DULOXETINE
     Dosage: 60 MILLIGRAM, ONCE A DAY, REDUCTION OF DULOXETINE DOSE
     Route: 065
  5. DULOXETINE. [Interacting]
     Active Substance: DULOXETINE
     Dosage: 30 MG, QD
     Route: 065
  6. HYDROCHLOROTHIAZIDE. [Concomitant]
     Active Substance: HYDROCHLOROTHIAZIDE
     Dosage: UNK
     Route: 065
  7. DULOXETINE. [Interacting]
     Active Substance: DULOXETINE
     Dosage: UNK (UP TO 90 MG PER DAY)
     Route: 065
  8. TRAMADOL. [Interacting]
     Active Substance: TRAMADOL
     Dosage: 75 MG, QD
     Route: 065
  9. BISOPROLOL [Concomitant]
     Active Substance: BISOPROLOL
     Indication: HYPERTENSION
     Dosage: 2.5 MILLIGRAM, ONCE A DAY
     Route: 065
  10. AGOMELATINE [Concomitant]
     Active Substance: AGOMELATINE
     Dosage: ()
  11. MIRTAZAPINE. [Concomitant]
     Active Substance: MIRTAZAPINE
     Dosage: UNK
     Route: 065
  12. HYDROCHLOROTHIAZIDE. [Concomitant]
     Active Substance: HYDROCHLOROTHIAZIDE
     Indication: PRODUCT USED FOR UNKNOWN INDICATION
     Dosage: 12.5 MILLIGRAM, ONCE A DAY
     Route: 065
  13. DULOXETINE. [Interacting]
     Active Substance: DULOXETINE
     Indication: DEPRESSION
     Dosage: 90 MILLIGRAM, ONCE A DAY
     Route: 065
  14. QUETIAPINE. [Concomitant]
     Active Substance: QUETIAPINE
     Indication: ANXIETY
     Dosage: 100 MILLIGRAM, ONCE A DAY
     Route: 065
  15. ATORVASTATIN [Concomitant]
     Active Substance: ATORVASTATIN
     Dosage: 40 MILLIGRAM, ONCE A DAY
     Route: 065
  16. MIRTAZAPINE. [Concomitant]
     Active Substance: MIRTAZAPINE
     Dosage: 7.5 MG, QD
     Route: 065
  17. HYDROCHLOROTHIAZIDE. [Concomitant]
     Active Substance: HYDROCHLOROTHIAZIDE
     Dosage: 12.5 MG, QD
     Route: 065
  18. ALCOHOL. [Concomitant]
     Active Substance: ALCOHOL
     Indication: PRODUCT USED FOR UNKNOWN INDICATION
     Dosage: UNK
     Route: 065
  19. DULOXETINE. [Interacting]
     Active Substance: DULOXETINE
     Dosage: 30 MILLIGRAM, ONCE A DAY
     Route: 065
  20. DULOXETINE. [Interacting]
     Active Substance: DULOXETINE
     Dosage: 60 MG, QD (REDUCTION OF DULOXETINE DOSE)
     Route: 065
  21. TRAMADOL. [Interacting]
     Active Substance: TRAMADOL
     Indication: PAIN
     Dosage: 75 MILLIGRAM, ONCE A DAY
     Route: 065
  22. PIPAMPERONE [Concomitant]
     Active Substance: PIPAMPERONE
     Dosage: UNK
     Route: 065
  23. MIRTAZAPINE. [Concomitant]
     Active Substance: MIRTAZAPINE
     Indication: SEDATIVE THERAPY
     Dosage: 7.5 MILLIGRAM, ONCE A DAY
     Route: 065
  24. BISOPROLOL [Concomitant]
     Active Substance: BISOPROLOL
     Dosage: 10 MILLIGRAM, ONCE A DAY
     Route: 065
  25. ATORVASTATIN [Concomitant]
     Active Substance: ATORVASTATIN
     Indication: PRODUCT USED FOR UNKNOWN INDICATION
     Dosage: 20 MILLIGRAM, ONCE A DAY
     Route: 065
  26. ATORVASTATIN [Concomitant]
     Active Substance: ATORVASTATIN
     Dosage: 40 MG, QD
     Route: 065
  27. AGOMELATINE [Concomitant]
     Active Substance: AGOMELATINE
     Dosage: 25 MG, QD
     Route: 065
  28. PIPAMPERONE [Concomitant]
     Active Substance: PIPAMPERONE
     Indication: SEDATIVE THERAPY
     Dosage: 20 MILLIGRAM, ONCE A DAY
     Route: 065
  29. PIPAMPERONE [Concomitant]
     Active Substance: PIPAMPERONE
     Dosage: 20 MG, QD
     Route: 065
  30. NICOTINE. [Concomitant]
     Active Substance: NICOTINE
     Indication: PRODUCT USED FOR UNKNOWN INDICATION
     Dosage: UNK
     Route: 065
  31. BISOPROLOL [Concomitant]
     Active Substance: BISOPROLOL
     Dosage: 2.5 MG, QD
     Route: 065
  32. BISOPROLOL [Concomitant]
     Active Substance: BISOPROLOL
     Dosage: 2.5 MG, QD
     Route: 065
  33. QUETIAPINE. [Concomitant]
     Active Substance: QUETIAPINE
     Dosage: UNK
     Route: 065
  34. AGOMELATINE [Concomitant]
     Active Substance: AGOMELATINE
     Indication: SEDATIVE THERAPY
     Dosage: 25 MILLIGRAM, ONCE A DAY
     Route: 065

REACTIONS (9)
  - Drug level increased [Recovering/Resolving]
  - Psychomotor hyperactivity [Recovered/Resolved]
  - Hyperhidrosis [Recovered/Resolved]
  - Thinking abnormal [Recovered/Resolved]
  - Tachycardia [Recovered/Resolved]
  - Serotonin syndrome [Recovering/Resolving]
  - Drug interaction [Recovering/Resolving]
  - Hypomania [Recovered/Resolved]
  - Disinhibition [Recovered/Resolved]
